FAERS Safety Report 8832198 (Version 2)
Quarter: 2014Q2

REPORT INFORMATION
  Report Type: Spontaneous
  Country: US (occurrence: US)
  Receive Date: 20121009
  Receipt Date: 20140513
  Transmission Date: 20141212
  Serious: No
  Sender: FDA-Public Use
  Company Number: US-ASTRAZENECA-2012SE76136

PATIENT
  Age: 5 Year
  Sex: Female
  Weight: 14.1 kg

DRUGS (3)
  1. SYMBICORT PMDI [Suspect]
     Indication: WHEEZING
     Dosage: 160/4.5 MCG, 1ST THREE DAYS DAYS TWO PUFFS EVERY SIX TO EIGHT HOURS
     Route: 055
  2. SYMBICORT PMDI [Suspect]
     Indication: WHEEZING
     Dosage: 160/4.5 MCG, NEXT THREE DAYS TWO PUFFS BID
     Route: 055
  3. SYMBICORT PMDI [Suspect]
     Indication: WHEEZING
     Dosage: 160/4.5MCG, LAST THREE DAYS TWO PUFFS IN THE AM
     Route: 055

REACTIONS (6)
  - Wheezing [Unknown]
  - Nasopharyngitis [Unknown]
  - Multiple allergies [Unknown]
  - Intentional product misuse [Unknown]
  - Off label use [Recovered/Resolved]
  - Off label use [Unknown]
